FAERS Safety Report 11929339 (Version 2)
Quarter: 2016Q1

REPORT INFORMATION
  Report Type: Report from Study
  Country: DE (occurrence: DE)
  Receive Date: 20160120
  Receipt Date: 20160121
  Transmission Date: 20160526
  Serious: Yes (Hospitalization)
  Sender: FDA-Public Use
  Company Number: DE-ABBVIE-16K-062-1539791-00

PATIENT
  Sex: Female

DRUGS (1)
  1. HUMIRA [Suspect]
     Active Substance: ADALIMUMAB
     Indication: CROHN^S DISEASE
     Route: 058
     Dates: start: 20150710, end: 201510

REACTIONS (3)
  - Drug specific antibody present [Recovering/Resolving]
  - Procedural pain [Recovered/Resolved]
  - Vaginal fistula [Recovered/Resolved]

NARRATIVE: CASE EVENT DATE: 2015
